FAERS Safety Report 25187768 (Version 1)
Quarter: 2025Q2

REPORT INFORMATION
  Report Type: Spontaneous
  Country: US (occurrence: US)
  Receive Date: 20250411
  Receipt Date: 20250411
  Transmission Date: 20250717
  Serious: Yes (Other)
  Sender: DEVICE MANUFACTURER
  Company Number: US-CORZA MEDICAL GMBH-2025-US-002293

PATIENT

DRUGS (1)
  1. TACHOSIL [Suspect]
     Active Substance: FIBRINOGEN HUMAN\HUMAN THROMBIN
     Route: 065

REACTIONS (3)
  - Cerebrospinal fluid leakage [Unknown]
  - Pseudomeningocele [Unknown]
  - Off label use [Unknown]
